FAERS Safety Report 8262165-3 (Version None)
Quarter: 2012Q2

REPORT INFORMATION
  Report Type: 
  Country: None (occurrence: None)
  Receive Date: 20120405
  Receipt Date: 20120323
  Transmission Date: 20120825
  Serious: Yes (Life-Threatening)
  Sender: FDA-Public Use
  Company Number: IT-PFIZER INC-2012071669

PATIENT
  Age: 76 Year
  Sex: Female

DRUGS (5)
  1. NITROGLYCERIN [Suspect]
     Indication: SYSTEMIC SCLEROSIS
     Dosage: 5 MG, 1X/DAY
     Route: 062
     Dates: start: 20120226, end: 20120226
  2. ALFACALCIDOL [Concomitant]
     Dosage: 10000 IU/ML, TDD 3 DROPS
     Route: 048
  3. VISTAGAN [Concomitant]
     Dosage: 0.5%
     Route: 047
  4. XALATAN [Concomitant]
     Dosage: 0.005%
  5. OLMESARTAN MEDOXOMIL [Concomitant]
     Dosage: 20 MG
     Route: 048

REACTIONS (5)
  - DYSPNOEA [None]
  - BALANCE DISORDER [None]
  - CONFUSIONAL STATE [None]
  - MIGRAINE [None]
  - CHEST PAIN [None]
